FAERS Safety Report 11937289 (Version 2)
Quarter: 2016Q1

REPORT INFORMATION
  Report Type: Report from Study
  Country: US (occurrence: US)
  Receive Date: 20160121
  Receipt Date: 20160331
  Transmission Date: 20160526
  Serious: Yes (Death)
  Sender: FDA-Public Use
  Company Number: US-TAIHO ONCOLOGY INC-EU-2016-00078

PATIENT
  Age: 62 Year
  Sex: Male

DRUGS (23)
  1. TESSALON [Concomitant]
     Active Substance: BENZONATATE
     Dates: start: 20150222
  2. METHYLPREDNISOLONE. [Concomitant]
     Active Substance: METHYLPREDNISOLONE
     Dates: start: 20141001
  3. SODIUM CHLORIDE. [Concomitant]
     Active Substance: SODIUM CHLORIDE
     Dates: start: 20140724, end: 20151229
  4. CLINDAMYCIN HYDROCHLORIDE. [Concomitant]
     Active Substance: CLINDAMYCIN HYDROCHLORIDE
     Dates: start: 20140813
  5. COMPRO [Concomitant]
     Active Substance: PROCHLORPERAZINE
     Dates: start: 20151106
  6. DIPHENHYDRAMINE. [Concomitant]
     Active Substance: DIPHENHYDRAMINE
     Dates: start: 20140724, end: 20151229
  7. DULERA [Concomitant]
     Active Substance: FORMOTEROL FUMARATE DIHYDRATE\MOMETASONE FUROATE
     Dosage: NI
  8. DEXAMETHASONE. [Concomitant]
     Active Substance: DEXAMETHASONE
     Dates: start: 20151211, end: 20160110
  9. CIPROFLOXACIN HYDROCHLORIDE. [Concomitant]
     Active Substance: CIPROFLOXACIN HYDROCHLORIDE
     Dates: start: 20140813
  10. ATIVAN [Concomitant]
     Active Substance: LORAZEPAM
     Dates: start: 20151218
  11. RESTORIL [Concomitant]
     Active Substance: TEMAZEPAM
     Dates: start: 20151204, end: 20160103
  12. BUDESONIDE AEROSOL [Concomitant]
     Dosage: NI
  13. LONSURF [Suspect]
     Active Substance: TIPIRACIL HYDROCHLORIDE\TRIFLURIDINE
     Indication: COLORECTAL CANCER METASTATIC
     Route: 048
     Dates: start: 20151106
  14. LOMOTIL [Concomitant]
     Active Substance: ATROPINE SULFATE\DIPHENOXYLATE HYDROCHLORIDE
     Dates: start: 20141102
  15. PROCHLORPERAZINE MALEATE. [Concomitant]
     Active Substance: PROCHLORPERAZINE MALEATE
     Dates: start: 20140813
  16. NORVASC [Concomitant]
     Active Substance: AMLODIPINE BESYLATE
     Dates: start: 20141212
  17. FERRLECIT [Concomitant]
     Active Substance: SODIUM FERRIC GLUCONATE COMPLEX
     Dates: start: 20140724, end: 20151229
  18. EMLA [Concomitant]
     Active Substance: LIDOCAINE\PRILOCAINE
     Dates: start: 20140731
  19. PARACETAMOL/HYDROCODONE BITARTRATE [Concomitant]
     Dates: start: 20151211
  20. IPRATROPIUM BROMIDE/SALBUTAMOL SULFATE [Concomitant]
     Dates: start: 20150831
  21. PARACETAMOL [Concomitant]
     Active Substance: ACETAMINOPHEN
     Dates: start: 20140724, end: 20151229
  22. NEURONTIN [Concomitant]
     Active Substance: GABAPENTIN
     Dates: start: 20141023
  23. TRIAMCINOLONE ACETONIDE/NYSTATIN [Concomitant]
     Dates: start: 20150924

REACTIONS (1)
  - Disease progression [Fatal]

NARRATIVE: CASE EVENT DATE: 20160111
